FAERS Safety Report 6696228-0 (Version None)
Quarter: 2010Q2

REPORT INFORMATION
  Report Type: 
  Country: None (occurrence: None)
  Receive Date: 20100426
  Receipt Date: 20100413
  Transmission Date: 20101027
  Serious: Yes (Other)
  Sender: FDA-Public Use
  Company Number: US-JNJFOC-20100403017

PATIENT
  Sex: Female

DRUGS (2)
  1. DOXIL [Suspect]
     Indication: OVARIAN EPITHELIAL CANCER
     Route: 042
  2. CANFOSFAMIDE [Concomitant]
     Indication: OVARIAN EPITHELIAL CANCER
     Route: 042

REACTIONS (1)
  - DERMATITIS [None]
